FAERS Safety Report 8173611-8 (Version None)
Quarter: 2012Q1

REPORT INFORMATION
  Report Type: 
  Country: None (occurrence: None)
  Receive Date: 20120223
  Receipt Date: 20120210
  Transmission Date: 20120608
  Serious: Yes (Death, Hospitalization)
  Sender: FDA-Public Use
  Company Number: 1000027433

PATIENT
  Age: 72 Year
  Sex: Male

DRUGS (5)
  1. ANAPLAG (SARPOGRELATE HYDROCHLORIDE) SARPOGRELATE HYDROCHLORIDE) [Concomitant]
  2. VITAFANT F (FURSULTIAMINE HYDROCHLORIDE) (FURSULTIAMINE HYDROCHLORIDE) [Concomitant]
  3. ARICEPT (DONEPEZIL HYDROCHLORIDE) (DONEPESIL HYDROCHLORIDE) [Concomitant]
  4. MEMANTINE [Suspect]
     Indication: DEMENTIA
     Dosage: 5 MG (5 MG, 1 IN 1 D), ORAL; 10 MG (10 MG, 1 IN 1 D), ORAL
     Route: 048
     Dates: start: 20110607, end: 20110101
  5. MEMANTINE [Suspect]
     Indication: DEMENTIA
     Dosage: 5 MG (5 MG, 1 IN 1 D), ORAL; 10 MG (10 MG, 1 IN 1 D), ORAL
     Route: 048
     Dates: start: 20110101, end: 20111212

REACTIONS (5)
  - LYMPHOCYTE STIMULATION TEST POSITIVE [None]
  - HEPATITIS ACUTE [None]
  - JAUNDICE [None]
  - HEPATIC NECROSIS [None]
  - HEPATIC STEATOSIS [None]
